FAERS Safety Report 22625975 (Version 1)
Quarter: 2023Q2

REPORT INFORMATION
  Report Type: Spontaneous
  Country: US (occurrence: None)
  Receive Date: 20230616
  Receipt Date: 20230616
  Transmission Date: 20230721
  Serious: Yes (Other)
  Sender: FDA-Public Use
  Company Number: None

PATIENT
  Sex: Female

DRUGS (1)
  1. DIMETHYL SULFOXIDE [Suspect]
     Active Substance: DIMETHYL SULFOXIDE

REACTIONS (3)
  - Exposure to toxic agent [None]
  - Condition aggravated [None]
  - Product administration error [None]

NARRATIVE: CASE EVENT DATE: 20230616
